FAERS Safety Report 5589708-2 (Version None)
Quarter: 2008Q1

REPORT INFORMATION
  Report Type: 
  Country: None (occurrence: None)
  Receive Date: 20080114
  Receipt Date: 20080108
  Transmission Date: 20080703
  Serious: Yes (Other)
  Sender: FDA-Public Use
  Company Number: B0500389A

PATIENT
  Age: 10 Year
  Sex: Female
  Weight: 46 kg

DRUGS (3)
  1. RELENZA [Suspect]
     Indication: INFLUENZA
     Dosage: 10MG TWICE PER DAY
     Route: 055
     Dates: start: 20071201, end: 20071205
  2. CLARITHROMYCIN [Concomitant]
     Indication: INFLUENZA
     Dosage: 300MG PER DAY
     Route: 048
     Dates: start: 20071201, end: 20071203
  3. CALONAL [Concomitant]
     Indication: INFLUENZA
     Route: 048

REACTIONS (1)
  - ABNORMAL BEHAVIOUR [None]
